FAERS Safety Report 6454803-2 (Version None)
Quarter: 2009Q4

REPORT INFORMATION
  Report Type: 
  Country: None (occurrence: None)
  Receive Date: 20091118
  Receipt Date: 20091102
  Transmission Date: 20100525
  Serious: Yes (Life-Threatening, Hospitalization)
  Sender: FDA-Public Use
  Company Number: ALD1-DE-2009-0031

PATIENT
  Age: 37 Year
  Sex: Female

DRUGS (4)
  1. ALDOMET [Suspect]
     Dosage: 10000 MG PER ORAL
     Route: 048
     Dates: start: 20090923, end: 20090923
  2. ZESTRIL [Suspect]
     Dosage: PER ORAL
     Route: 048
     Dates: start: 20090923, end: 20090923
  3. NITRENDIPINE (NITRENDIPINE) (NITRENDIPINE) [Suspect]
     Dosage: 800 MG PER ORAL
     Route: 048
     Dates: start: 20090923, end: 20090923
  4. MOLSIDOMINE (MOLSIDOMINE) (TABLETS) (MOLSIDOMINE) [Suspect]
     Dosage: 320 MG PER ORAL
     Route: 048
     Dates: start: 20090923, end: 20090923

REACTIONS (6)
  - CARDIOGENIC SHOCK [None]
  - CHOLECYSTITIS [None]
  - HYPONATRAEMIA [None]
  - OVERDOSE [None]
  - SELF-MEDICATION [None]
  - SUICIDAL IDEATION [None]
